FAERS Safety Report 15452867 (Version 1)
Quarter: 2018Q4

REPORT INFORMATION
  Report Type: Spontaneous
  Country: JP (occurrence: JP)
  Receive Date: 20181001
  Receipt Date: 20181001
  Transmission Date: 20190204
  Serious: Yes (Other)
  Sender: FDA-Public Use
  Company Number: JP-PFIZER INC-2018388712

PATIENT
  Age: 73 Year

DRUGS (4)
  1. LEXOTAN [Concomitant]
     Active Substance: BROMAZEPAM
     Route: 048
  2. WYPAX [Suspect]
     Active Substance: LORAZEPAM
     Indication: HEADACHE
     Dosage: UNK, AS NEEDED
     Route: 048
     Dates: start: 201511
  3. DESYREL [Concomitant]
     Active Substance: TRAZODONE HYDROCHLORIDE
     Route: 048
  4. LEXAPRO [Concomitant]
     Active Substance: ESCITALOPRAM OXALATE
     Route: 048

REACTIONS (4)
  - Hypersomnia [Unknown]
  - Cardio-respiratory arrest [Unknown]
  - Cerebral infarction [Unknown]
  - Fall [Unknown]

NARRATIVE: CASE EVENT DATE: 2015
